FAERS Safety Report 18816968 (Version 2)
Quarter: 2021Q1

REPORT INFORMATION
  Report Type: Spontaneous
  Country: DE (occurrence: DE)
  Receive Date: 20210201
  Receipt Date: 20210210
  Transmission Date: 20210419
  Serious: Yes (Other)
  Sender: FDA-Public Use
  Company Number: DE-GLAXOSMITHKLINE-DE2021016470

PATIENT
  Age: 83 Year
  Sex: Male
  Weight: 79 kg

DRUGS (4)
  1. DUODART [Suspect]
     Active Substance: DUTASTERIDE\TAMSULOSIN
     Indication: PENILE CANCER
     Dosage: UNK, (AT TIMES TWICE A DAY, THEN ONCE A DAY)
     Route: 048
     Dates: start: 201807, end: 201912
  2. DUODART [Suspect]
     Active Substance: DUTASTERIDE\TAMSULOSIN
     Indication: PROSTATOMEGALY
  3. DUODART [Suspect]
     Active Substance: DUTASTERIDE\TAMSULOSIN
     Indication: AMPUTATION OF PENIS
  4. DUODART [Suspect]
     Active Substance: DUTASTERIDE\TAMSULOSIN
     Indication: URINARY HESITATION

REACTIONS (10)
  - Rhinorrhoea [Recovering/Resolving]
  - Depression [Recovering/Resolving]
  - Nasal pruritus [Recovering/Resolving]
  - Fall [Unknown]
  - Somnolence [Recovering/Resolving]
  - Fatigue [Recovering/Resolving]
  - Syncope [Recovering/Resolving]
  - Anxiety [Recovering/Resolving]
  - Dizziness [Recovering/Resolving]
  - Fracture [Recovered/Resolved with Sequelae]

NARRATIVE: CASE EVENT DATE: 20180801
